FAERS Safety Report 6417881-2 (Version None)
Quarter: 2009Q4

REPORT INFORMATION
  Report Type: 
  Country: None (occurrence: None)
  Receive Date: 20091028
  Receipt Date: 20091023
  Transmission Date: 20100525
  Serious: Yes (Hospitalization, Other)
  Sender: FDA-Public Use
  Company Number: A0813488A

PATIENT
  Sex: Female

DRUGS (1)
  1. HYCAMTIN [Suspect]
     Dosage: 2.3MGM2 PER DAY
     Route: 048

REACTIONS (5)
  - FEBRILE NEUTROPENIA [None]
  - FUNGAL INFECTION [None]
  - MECHANICAL VENTILATION [None]
  - NEUTROPENIA [None]
  - THROMBOCYTOPENIA [None]
